FAERS Safety Report 23542849 (Version 2)
Quarter: 2024Q1

REPORT INFORMATION
  Report Type: Spontaneous
  Country: CA (occurrence: CA)
  Receive Date: 20240220
  Receipt Date: 20240221
  Transmission Date: 20240409
  Serious: Yes (Other)
  Sender: FDA-Public Use
  Company Number: CA-BAXTER-2024BAX013054

PATIENT
  Sex: Male

DRUGS (24)
  1. PROPOFOL [Suspect]
     Active Substance: PROPOFOL
     Indication: New onset refractory status epilepticus
     Dosage: DOSAGE FORM: NOT SPECIFIED
     Route: 065
  2. AZATHIOPRINE [Suspect]
     Active Substance: AZATHIOPRINE
     Indication: New onset refractory status epilepticus
     Dosage: DOSAGE FORM: NOT SPECIFIED
     Route: 065
  3. BRIVARACETAM [Suspect]
     Active Substance: BRIVARACETAM
     Indication: New onset refractory status epilepticus
     Dosage: DOSAGE FORM: NOT SPECIFIED
     Route: 065
  4. ESLICARBAZEPINE ACETATE [Suspect]
     Active Substance: ESLICARBAZEPINE ACETATE
     Dosage: UNK
     Route: 048
  5. FENTANYL [Suspect]
     Active Substance: FENTANYL\FENTANYL CITRATE
     Indication: New onset refractory status epilepticus
     Dosage: DOSAGE FORM: NOT SPECIFIED
     Route: 065
  6. KETAMINE HYDROCHLORIDE [Suspect]
     Active Substance: KETAMINE HYDROCHLORIDE
     Indication: New onset refractory status epilepticus
     Dosage: UNK
     Route: 065
  7. LACOSAMIDE [Suspect]
     Active Substance: LACOSAMIDE
     Indication: New onset refractory status epilepticus
     Dosage: UNK
     Route: 065
  8. LAMOTRIGINE [Suspect]
     Active Substance: LAMOTRIGINE
     Indication: New onset refractory status epilepticus
     Dosage: UNK
     Route: 065
  9. LEVETIRACETAM [Suspect]
     Active Substance: LEVETIRACETAM
     Indication: New onset refractory status epilepticus
     Dosage: DOSAGE FORM: NOT SPECIFIED
     Route: 065
  10. METHYLPREDNISOLONE SODIUM SUCCINATE [Suspect]
     Active Substance: METHYLPREDNISOLONE SODIUM SUCCINATE
     Indication: New onset refractory status epilepticus
     Dosage: UNK
     Route: 065
  11. MIDAZOLAM HYDROCHLORIDE [Suspect]
     Active Substance: MIDAZOLAM HYDROCHLORIDE
     Indication: New onset refractory status epilepticus
     Dosage: UNK
     Route: 065
  12. PERAMPANEL [Suspect]
     Active Substance: PERAMPANEL
     Indication: New onset refractory status epilepticus
     Dosage: UNK
     Route: 065
  13. PHENOBARBITAL [Suspect]
     Active Substance: PHENOBARBITAL
     Indication: New onset refractory status epilepticus
     Dosage: DOSAGE FORM: NOT SPECIFIED
     Route: 065
  14. PHENYTOIN [Suspect]
     Active Substance: PHENYTOIN
     Indication: New onset refractory status epilepticus
     Dosage: DOSAGE FORM: NOT SPECIFIED
     Route: 065
  15. PREDNISONE [Suspect]
     Active Substance: PREDNISONE
     Indication: New onset refractory status epilepticus
     Dosage: DOSAGE FORM: NOT SPECIFIED
     Route: 065
  16. TOPIRAMATE [Suspect]
     Active Substance: TOPIRAMATE
     Indication: New onset refractory status epilepticus
     Dosage: DOSAGE FORM: NOT SPECIFIED
     Route: 065
  17. VALPROIC ACID [Suspect]
     Active Substance: VALPROIC ACID
     Indication: New onset refractory status epilepticus
     Dosage: DOSAGE FORM: NOT SPECIFIED
     Route: 065
  18. FYCOMPA [Suspect]
     Active Substance: PERAMPANEL
     Indication: New onset refractory status epilepticus
     Dosage: UNK
     Route: 065
  19. KETAMINE [Suspect]
     Active Substance: KETAMINE
     Indication: New onset refractory status epilepticus
     Dosage: DOSAGE FORM: NOT SPECIFIED
     Route: 065
  20. ESLICARBAZEPINE ACETATE [Suspect]
     Active Substance: ESLICARBAZEPINE ACETATE
     Indication: New onset refractory status epilepticus
     Route: 065
  21. VANCOMYCIN HYDROCHLORIDE [Concomitant]
     Active Substance: VANCOMYCIN HYDROCHLORIDE
     Indication: Product used for unknown indication
     Dosage: UNK
     Route: 065
  22. ACYCLOVIR [Concomitant]
     Active Substance: ACYCLOVIR
     Indication: Product used for unknown indication
     Dosage: DOSAGE FORM: NOT SPECIFIED
     Route: 065
  23. PIPERACILLIN AND TAZOBACTAM [Concomitant]
     Active Substance: PIPERACILLIN SODIUM\TAZOBACTAM SODIUM
     Indication: Product used for unknown indication
     Dosage: UNK
     Route: 065
  24. VANCOMYCIN [Concomitant]
     Active Substance: VANCOMYCIN
     Indication: Product used for unknown indication
     Dosage: DOSAGE FORM: NOT SPECIFIED
     Route: 065

REACTIONS (5)
  - Condition aggravated [Unknown]
  - Drug ineffective [Unknown]
  - New onset refractory status epilepticus [Unknown]
  - Product use in unapproved indication [Unknown]
  - Off label use [Unknown]
